FAERS Safety Report 5271916-1 (Version None)
Quarter: 2007Q1

REPORT INFORMATION
  Report Type: 
  Country: None (occurrence: None)
  Receive Date: 20070319
  Receipt Date: 20070307
  Transmission Date: 20070707
  Serious: Yes (Other)
  Sender: FDA-Public Use
  Company Number: 163-21880-07030340

PATIENT
  Age: 44 Year
  Sex: Male
  Weight: 53.1616 kg

DRUGS (5)
  1. REVLIMID [Suspect]
     Indication: THYROID CANCER
     Dosage: 20 MG, DAILY, ORAL
     Route: 048
     Dates: start: 20060703, end: 20070129
  2. TUMS (CALCIUM CARBONATE) [Concomitant]
  3. SYNTHROID [Concomitant]
  4. CALCITRIOL [Concomitant]
  5. ASPIRIN [Concomitant]

REACTIONS (3)
  - BONE MARROW FAILURE [None]
  - IDIOPATHIC THROMBOCYTOPENIC PURPURA [None]
  - MARROW HYPERPLASIA [None]
